FAERS Safety Report 9525561 (Version 1)
Quarter: 2013Q3

REPORT INFORMATION
  Report Type: Spontaneous
  Country: US (occurrence: US)
  Receive Date: 20130916
  Receipt Date: 20130916
  Transmission Date: 20140515
  Serious: Yes (Hospitalization)
  Sender: FDA-Public Use
  Company Number: US-MYLANLABS-2013S1019892

PATIENT
  Age: 35 Year
  Sex: Male

DRUGS (4)
  1. FLUOROURACIL [Suspect]
     Indication: RECTAL CANCER STAGE III
     Dosage: CONTINUOUS INFUSION OF 225 MG/M2/24; PART OF FOLFOX CHEMOTHERAPY
     Route: 041
  2. CAPECITABINE [Suspect]
     Indication: RECTAL CANCER STAGE III
     Dosage: 1600 MG/M2/24
     Route: 048
  3. OXALIPLATIN [Concomitant]
     Indication: RECTAL CANCER STAGE III
     Dosage: PART OF FOLFOX CHEMOTHERAPY
     Route: 065
  4. FOLINIC ACID [Concomitant]
     Indication: RECTAL CANCER STAGE III
     Dosage: PART OF FOLFOX CHEMOTHERAPY
     Route: 065

REACTIONS (1)
  - Cardiotoxicity [Recovered/Resolved]
